FAERS Safety Report 8971259 (Version 2)
Quarter: 2013Q1

REPORT INFORMATION
  Report Type: Report from Study
  Country: US (occurrence: US)
  Receive Date: 20121218
  Receipt Date: 20130205
  Transmission Date: 20140127
  Serious: Yes (Death)
  Sender: FDA-Public Use
  Company Number: US-ROCHE-1168338

PATIENT
  Age: 37 Year
  Sex: Male

DRUGS (10)
  1. CELLCEPT [Suspect]
     Indication: TRANSPLANT
     Route: 065
  2. ASCORBIC ACID [Concomitant]
  3. ASPIRIN [Concomitant]
  4. ATORVASTATIN CALCIUM [Concomitant]
  5. CALCIUM CITRATE WITH VITAMIN D3 [Concomitant]
  6. DILTIAZEM HCL [Concomitant]
  7. FEXOFENADINE HCL [Concomitant]
  8. FUROSEMIDE [Concomitant]
  9. MAGNESIUM OXIDE [Concomitant]
  10. OMEPRAZOLE [Concomitant]

REACTIONS (2)
  - Right ventricular failure [Fatal]
  - Retroperitoneal haemorrhage [Fatal]
